FAERS Safety Report 8477068-9 (Version None)
Quarter: 2012Q2

REPORT INFORMATION
  Report Type: 
  Country: None (occurrence: None)
  Receive Date: 20120629
  Receipt Date: 20120625
  Transmission Date: 20120825
  Serious: No
  Sender: FDA-Public Use
  Company Number: US-PFIZER INC-2012152655

PATIENT
  Sex: Male
  Weight: 65.76 kg

DRUGS (1)
  1. LYRICA [Suspect]
     Indication: PAIN
     Dosage: 25 MG, UNK
     Route: 048
     Dates: start: 20120201, end: 20120501

REACTIONS (4)
  - DRUG ADMINISTERED TO PATIENT OF INAPPROPRIATE AGE [None]
  - PAIN [None]
  - PANIC ATTACK [None]
  - ANXIETY [None]
